FAERS Safety Report 24700036 (Version 4)
Quarter: 2025Q1

REPORT INFORMATION
  Report Type: Spontaneous
  Country: CA (occurrence: CA)
  Receive Date: 20241205
  Receipt Date: 20250211
  Transmission Date: 20250408
  Serious: Yes (Other)
  Sender: CELLTRION
  Company Number: CA-PFIZER INC-202400243958

PATIENT

DRUGS (6)
  1. INFLECTRA [Suspect]
     Active Substance: INFLIXIMAB-DYYB
     Indication: Colitis ulcerative
     Route: 042
     Dates: start: 20240822
  2. INFLECTRA [Suspect]
     Active Substance: INFLIXIMAB-DYYB
     Route: 042
     Dates: start: 20240905
  3. INFLECTRA [Suspect]
     Active Substance: INFLIXIMAB-DYYB
     Route: 042
     Dates: start: 20241002
  4. INFLECTRA [Suspect]
     Active Substance: INFLIXIMAB-DYYB
     Route: 042
     Dates: start: 20241127
  5. INFLECTRA [Suspect]
     Active Substance: INFLIXIMAB-DYYB
     Route: 042
     Dates: start: 20250122
  6. PREDNISONE [Concomitant]
     Active Substance: PREDNISONE

REACTIONS (9)
  - Loss of consciousness [Unknown]
  - Syncope [Unknown]
  - Dizziness [Unknown]
  - Presyncope [Recovering/Resolving]
  - Pallor [Recovering/Resolving]
  - Blood pressure diastolic decreased [Unknown]
  - Heart rate decreased [Unknown]
  - Condition aggravated [Recovering/Resolving]
  - Off label use [Unknown]

NARRATIVE: CASE EVENT DATE: 20240101
